FAERS Safety Report 9816274 (Version 1)
Quarter: 2014Q1

REPORT INFORMATION
  Report Type: Report from Study
  Country: AR (occurrence: AR)
  Receive Date: 20140114
  Receipt Date: 20140114
  Transmission Date: 20141002
  Serious: Yes (Death, Other)
  Sender: FDA-Public Use
  Company Number: PHHY2014AR003696

PATIENT
  Sex: Female

DRUGS (3)
  1. GALVUS [Suspect]
     Dosage: UNK UKN, UNK
  2. RASILEZ [Suspect]
     Dosage: UNK UKN, UNK
  3. EXELON [Suspect]
     Dosage: UNK UKN, UNK

REACTIONS (2)
  - Infection [Fatal]
  - Urinary tract infection [Unknown]
